FAERS Safety Report 4565761-X (Version None)
Quarter: 2005Q1

REPORT INFORMATION
  Report Type: 
  Country: None (occurrence: None)
  Receive Date: 20050126
  Receipt Date: 20050112
  Transmission Date: 20050727
  Serious: Yes (Other)
  Sender: FDA-Public Use
  Company Number: ENTC2004-0245

PATIENT
  Age: 74 Year
  Sex: Female

DRUGS (12)
  1. STALEVO (TABLET) (LEVODOPA, CARBIDOPA, ENTACAPONE) [Suspect]
     Indication: PARKINSON'S DISEASE
     Dosage: 100 MG, TID
     Dates: start: 20041101, end: 20041202
  2. MIRAPEX [Concomitant]
  3. SELEGILINE HCL [Concomitant]
  4. HYDROCHLOROTHIAZIDE [Concomitant]
  5. TORSEMIDE [Concomitant]
  6. PROTONIX [Concomitant]
  7. POTASSIUM CHLORIDE [Concomitant]
  8. ASPIRIN [Concomitant]
  9. VITAMIN E [Concomitant]
  10. LAXATIVES [Concomitant]
  11. STOOL SOFTENER [Concomitant]
  12. MULTI-VITAMINS [Concomitant]

REACTIONS (8)
  - BACK PAIN [None]
  - CONDITION AGGRAVATED [None]
  - ERYTHEMA [None]
  - NASAL DISORDER [None]
  - NASAL OEDEMA [None]
  - NEOPLASM MALIGNANT [None]
  - PRURITUS [None]
  - SKIN DISCOLOURATION [None]
